FAERS Safety Report 17612083 (Version 4)
Quarter: 2020Q2

REPORT INFORMATION
  Report Type: Report from Study
  Country: TW (occurrence: TW)
  Receive Date: 20200401
  Receipt Date: 20200423
  Transmission Date: 20200713
  Serious: Yes (Hospitalization)
  Sender: FDA-Public Use
  Company Number: TW-JNJFOC-20200226236

PATIENT
  Age: 37 Year
  Sex: Female
  Weight: 47.1 kg

DRUGS (6)
  1. STELARA [Suspect]
     Active Substance: USTEKINUMAB
     Dosage: WEEK 8 (1)
     Route: 058
     Dates: start: 20191022
  2. STELARA [Suspect]
     Active Substance: USTEKINUMAB
     Dosage: WEEK 16 (1)
     Route: 058
     Dates: start: 20191210
  3. STELARA [Suspect]
     Active Substance: USTEKINUMAB
     Dosage: WEEK 24 (1)
     Route: 058
     Dates: start: 20200204
  4. STELARA [Suspect]
     Active Substance: USTEKINUMAB
     Indication: SYSTEMIC LUPUS ERYTHEMATOSUS
     Dosage: WEEK 0
     Route: 042
     Dates: start: 20190820, end: 20190820
  5. HYDROXYCHLOROQUINE SULFATE. [Concomitant]
     Active Substance: HYDROXYCHLOROQUINE SULFATE
     Route: 048
     Dates: start: 20200215, end: 20200302
  6. HYDROXYCHLOROQUINE SULFATE. [Concomitant]
     Active Substance: HYDROXYCHLOROQUINE SULFATE
     Indication: SYSTEMIC LUPUS ERYTHEMATOSUS
     Route: 048
     Dates: start: 20190118

REACTIONS (2)
  - Urinary tract infection [Recovered/Resolved]
  - Systemic lupus erythematosus [Recovered/Resolved]

NARRATIVE: CASE EVENT DATE: 20200213
